FAERS Safety Report 11888067 (Version 1)
Quarter: 2016Q1

REPORT INFORMATION
  Report Type: Spontaneous
  Country: US (occurrence: US)
  Receive Date: 20160105
  Receipt Date: 20160105
  Transmission Date: 20160526
  Serious: No
  Sender: FDA-Public Use
  Company Number: US-BAYER-2016-001452

PATIENT
  Age: 80 Year
  Sex: Female
  Weight: 43.84 kg

DRUGS (1)
  1. MIRALAX [Suspect]
     Active Substance: POLYETHYLENE GLYCOL 3350
     Indication: CONSTIPATION
     Dosage: LESS OR MORE THEN 17 GR, QD
     Route: 048

REACTIONS (4)
  - Diarrhoea [None]
  - Abdominal pain upper [None]
  - Off label use [None]
  - Intentional product use issue [None]
